FAERS Safety Report 6301467-4 (Version None)
Quarter: 2009Q3

REPORT INFORMATION
  Report Type: 
  Country: None (occurrence: None)
  Receive Date: 20090807
  Receipt Date: 20090804
  Transmission Date: 20100115
  Serious: Yes (Hospitalization)
  Sender: FDA-Public Use
  Company Number: A0757948A

PATIENT
  Age: 56 Year
  Sex: Female

DRUGS (1)
  1. AVANDIA [Suspect]
     Dosage: 2MG PER DAY
     Route: 048
     Dates: start: 20070228, end: 20080101

REACTIONS (1)
  - CEREBROVASCULAR ACCIDENT [None]
